FAERS Safety Report 9370009 (Version 1)
Quarter: 2013Q2

REPORT INFORMATION
  Report Type: Spontaneous
  Country: FR (occurrence: FR)
  Receive Date: 20130626
  Receipt Date: 20130626
  Transmission Date: 20140414
  Serious: Yes (Hospitalization)
  Sender: FDA-Public Use
  Company Number: FR-009507513-1306FRA008178

PATIENT
  Age: 94 Year
  Sex: Female

DRUGS (2)
  1. NORSET [Suspect]
     Indication: AFFECTIVE DISORDER
     Dosage: 15 MG, QD
     Route: 048
     Dates: start: 20130429, end: 20130521
  2. NORSET [Suspect]
     Dosage: 30 MG, QD
     Route: 048
     Dates: start: 20130522, end: 20130528

REACTIONS (3)
  - Mutism [Recovered/Resolved]
  - Communication disorder [Recovered/Resolved]
  - Amnesia [Recovered/Resolved]
